FAERS Safety Report 18245780 (Version 1)
Quarter: 2020Q3

REPORT INFORMATION
  Report Type: Report from Study
  Country: None (occurrence: US)
  Receive Date: 20200909
  Receipt Date: 20200909
  Transmission Date: 20201103
  Serious: Yes (Other)
  Sender: FDA-Public Use
  Company Number: US-ABBVIE-20K-163-3556960-00

PATIENT
  Age: 25 Year
  Sex: Female

DRUGS (1)
  1. HUMIRA [Suspect]
     Active Substance: ADALIMUMAB
     Indication: CROHN^S DISEASE
     Route: 058
     Dates: start: 202003, end: 2020

REACTIONS (5)
  - Fistula [Unknown]
  - Incorrect dose administered [Unknown]
  - Injection site reaction [Unknown]
  - Abscess [Unknown]
  - Abdominal pain [Unknown]

NARRATIVE: CASE EVENT DATE: 2020
